FAERS Safety Report 5427732-0 (Version None)
Quarter: 2007Q3

REPORT INFORMATION
  Report Type: 
  Country: None (occurrence: None)
  Receive Date: 20070828
  Receipt Date: 20070823
  Transmission Date: 20080115
  Serious: Yes (Death)
  Sender: FDA-Public Use
  Company Number: US-BAXTER-2007BH006914

PATIENT
  Sex: Female
  Weight: 54 kg

DRUGS (5)
  1. SODIUM CHLORIDE 0.9% IN PLASTIC CONTAINER [Suspect]
     Indication: RENAL FAILURE CHRONIC
     Route: 010
     Dates: start: 20070731, end: 20070731
  2. OXYGEN [Concomitant]
     Indication: DRUG USE FOR UNKNOWN INDICATION
     Dosage: DOSE UNIT:
     Route: 065
  3. ATIVAN [Concomitant]
     Indication: RESTLESSNESS
     Route: 042
  4. HEPARIN [Concomitant]
     Indication: HAEMODIALYSIS
     Route: 010
  5. EPOGEN [Concomitant]
     Indication: DRUG USE FOR UNKNOWN INDICATION
     Route: 065

REACTIONS (1)
  - SEPSIS [None]
